FAERS Safety Report 6046977-2 (Version None)
Quarter: 2009Q1

REPORT INFORMATION
  Report Type: 
  Country: None (occurrence: None)
  Receive Date: 20090122
  Receipt Date: 20090112
  Transmission Date: 20090719
  Serious: Yes (Hospitalization)
  Sender: FDA-Public Use
  Company Number: US-ABBOTT-08P-163-0487673-02

PATIENT
  Sex: Male
  Weight: 55.842 kg

DRUGS (9)
  1. HUMIRA [Suspect]
     Indication: ANKYLOSING SPONDYLITIS
     Route: 058
     Dates: start: 20040624, end: 20080928
  2. TEGRETOL [Concomitant]
     Indication: CONVULSION
     Dates: start: 20071216
  3. VIOXX [Concomitant]
     Indication: ANKYLOSING SPONDYLITIS
     Dates: start: 20010101, end: 20041006
  4. WARFARIN SODIUM [Concomitant]
     Indication: CARDIOVASCULAR EVENT PROPHYLAXIS
     Dates: start: 19980101
  5. WARFARIN SODIUM [Concomitant]
     Route: 048
     Dates: start: 20081119
  6. CARBAMAZEPINE [Concomitant]
     Indication: PETIT MAL EPILEPSY
     Dates: start: 19980101
  7. CARBAMAZEPINE [Concomitant]
     Dates: start: 20081103
  8. DICLOXACILLIN [Concomitant]
     Indication: PARONYCHIA
     Dates: start: 20040629, end: 20040706
  9. CELEBREX [Concomitant]
     Indication: ANKYLOSING SPONDYLITIS
     Dates: start: 20041007, end: 20041013

REACTIONS (1)
  - PYREXIA [None]
